FAERS Safety Report 4653423-X (Version None)
Quarter: 2005Q2

REPORT INFORMATION
  Report Type: 
  Country: None (occurrence: None)
  Receive Date: 20050505
  Receipt Date: 20050421
  Transmission Date: 20051028
  Serious: Yes (Disabling, Other)
  Sender: FDA-Public Use
  Company Number: GB-GLAXOSMITHKLINE-B0379106A

PATIENT
  Age: 13 Year
  Sex: Male

DRUGS (2)
  1. PARACETAMOL [Suspect]
     Route: 065
  2. RISPERIDONE [Suspect]
     Indication: BIPOLAR DISORDER
     Route: 065

REACTIONS (3)
  - AGGRESSION [None]
  - DISORIENTATION [None]
  - DRUG INTERACTION [None]
